FAERS Safety Report 6180573-1 (Version None)
Quarter: 2009Q2

REPORT INFORMATION
  Report Type: 
  Country: None (occurrence: None)
  Receive Date: 20090504
  Receipt Date: 20090504
  Transmission Date: 20091009
  Serious: Yes (Disabling)
  Sender: FDA-Public Use
  Company Number: None

PATIENT
  Age: 30 Year
  Sex: Female
  Weight: 64.8644 kg

DRUGS (1)
  1. TEGRETOL [Suspect]
     Indication: NEURALGIA
     Dosage: 3   2X A DAY ORAL
     Route: 048
     Dates: start: 20090301, end: 20090313

REACTIONS (7)
  - DIPLOPIA [None]
  - FEELING DRUNK [None]
  - HEADACHE [None]
  - HYPOAESTHESIA ORAL [None]
  - MALAISE [None]
  - NO THERAPEUTIC RESPONSE [None]
  - VERTIGO [None]
